FAERS Safety Report 26079026 (Version 1)
Quarter: 2025Q4

REPORT INFORMATION
  Report Type: Spontaneous
  Country: US (occurrence: US)
  Receive Date: 20251123
  Receipt Date: 20251123
  Transmission Date: 20260117
  Serious: No
  Sender: GALPHARM INTERNATIONAL
  Company Number: US-PERRIGO-25US004414

PATIENT
  Sex: Female

DRUGS (1)
  1. OPILL [Suspect]
     Active Substance: NORGESTREL
     Indication: Muscle spasms
     Dosage: UNKNOWN, UNKNOWN
     Route: 048

REACTIONS (4)
  - Weight increased [Unknown]
  - Abdominal distension [Unknown]
  - Rash [Unknown]
  - Product use in unapproved indication [Unknown]
